FAERS Safety Report 21035135 (Version 1)
Quarter: 2022Q3

REPORT INFORMATION
  Report Type: Spontaneous
  Country: US (occurrence: US)
  Receive Date: 20220701
  Receipt Date: 20220701
  Transmission Date: 20221027
  Serious: No
  Sender: FDA-Public Use
  Company Number: US-PFIZER INC-202200912704

PATIENT
  Age: 58 Year
  Sex: Female
  Weight: 79.38 kg

DRUGS (2)
  1. PAXLOVID [Suspect]
     Active Substance: NIRMATRELVIR\RITONAVIR
     Indication: COVID-19 treatment
     Dosage: UNK (NIMATRELVIR 150MG TWO TABLETS/RITONAVIR 100MG ONE TABLET EACH DAY AND NIGHT DOSE)
     Dates: start: 20220628
  2. VALTREX [Suspect]
     Active Substance: VALACYCLOVIR HYDROCHLORIDE
     Dosage: UNK

REACTIONS (5)
  - Herpes zoster [Not Recovered/Not Resolved]
  - Pruritus [Not Recovered/Not Resolved]
  - Illness [Unknown]
  - Blister [Unknown]
  - Acne [Unknown]

NARRATIVE: CASE EVENT DATE: 20220628
